FAERS Safety Report 10152420 (Version 1)
Quarter: 2014Q2

REPORT INFORMATION
  Report Type: Spontaneous
  Country: US (occurrence: None)
  Receive Date: 20140502
  Receipt Date: 20140502
  Transmission Date: 20141212
  Serious: Yes (Other)
  Sender: FDA-Public Use
  Company Number: None

PATIENT
  Age: 43 Year
  Sex: Male

DRUGS (2)
  1. BUPROPRION XL [Suspect]
     Indication: DYSTHYMIC DISORDER
     Route: 048
     Dates: start: 20140310, end: 20140430
  2. BUPROPRION XL [Suspect]
     Indication: MAJOR DEPRESSION
     Route: 048
     Dates: start: 20140310, end: 20140430

REACTIONS (6)
  - Product quality issue [None]
  - Product substitution issue [None]
  - Drug ineffective [None]
  - Major depression [None]
  - Metabolic disorder [None]
  - Medication residue present [None]
